FAERS Safety Report 6828122-6 (Version None)
Quarter: 2010Q3

REPORT INFORMATION
  Report Type: 
  Country: None (occurrence: None)
  Receive Date: 20100709
  Receipt Date: 20070130
  Transmission Date: 20110219
  Serious: No
  Sender: FDA-Public Use
  Company Number: US-PFIZER INC-2007009382

PATIENT
  Sex: Female
  Weight: 68.04 kg

DRUGS (3)
  1. CHANTIX [Suspect]
     Indication: SMOKING CESSATION THERAPY
     Dates: start: 20070119
  2. ADIPEX [Interacting]
     Indication: DECREASED APPETITE
     Dates: end: 20070101
  3. LEXAPRO [Concomitant]

REACTIONS (5)
  - DECREASED APPETITE [None]
  - DRUG INTERACTION [None]
  - FEELING ABNORMAL [None]
  - HYPERHIDROSIS [None]
  - NAUSEA [None]
